FAERS Safety Report 8233246-5 (Version None)
Quarter: 2012Q1

REPORT INFORMATION
  Report Type: 
  Country: None (occurrence: None)
  Receive Date: 20120326
  Receipt Date: 20120322
  Transmission Date: 20120608
  Serious: No
  Sender: FDA-Public Use
  Company Number: US-PFIZER INC-2012009376

PATIENT
  Sex: Female
  Weight: 77.098 kg

DRUGS (4)
  1. ADVIL CONGESTION RELIEF [Suspect]
     Indication: NASOPHARYNGITIS
     Dosage: UNK, EVERY 5-6 HOURS
     Route: 048
     Dates: start: 20120110
  2. ADVIL CONGESTION RELIEF [Suspect]
     Indication: OROPHARYNGEAL DISCOMFORT
  3. GEODON [Concomitant]
     Indication: MENTAL DISORDER
     Dosage: 20 MG IN THE AFTERNOON 60MG IN THE EVENING
  4. LAMICTAL [Concomitant]
     Indication: MENTAL DISORDER
     Dosage: UNK, 2X/DAY
     Route: 048

REACTIONS (1)
  - DRUG INEFFECTIVE [None]
